FAERS Safety Report 9425747 (Version 4)
Quarter: 2016Q2

REPORT INFORMATION
  Report Type: Spontaneous
  Country: JP (occurrence: JP)
  Receive Date: 20130729
  Receipt Date: 20160608
  Transmission Date: 20160815
  Serious: Yes (Hospitalization, Other)
  Sender: FDA-Public Use
  Company Number: JP-PFIZER INC-2013216521

PATIENT
  Age: 2 Year
  Sex: Male
  Weight: 9.6 kg

DRUGS (4)
  1. FLUDROCORTISONE [Concomitant]
     Active Substance: FLUDROCORTISONE
     Indication: 21-HYDROXYLASE DEFICIENCY
  2. HYDROCORTISONE. [Suspect]
     Active Substance: HYDROCORTISONE
     Indication: 21-HYDROXYLASE DEFICIENCY
  3. HYDROCORTISONE. [Suspect]
     Active Substance: HYDROCORTISONE
     Indication: ADRENOGENITAL SYNDROME
     Dosage: UNK
     Route: 048
  4. FLUDROCORTISONE [Concomitant]
     Active Substance: FLUDROCORTISONE
     Indication: ADRENOGENITAL SYNDROME
     Dosage: UNK
     Route: 048

REACTIONS (2)
  - Hypercalciuria [Recovered/Resolved]
  - Ureterolithiasis [Recovered/Resolved]
